FAERS Safety Report 9263037 (Version 1)
Quarter: 2013Q2

REPORT INFORMATION
  Report Type: Spontaneous
  Country: DK (occurrence: None)
  Receive Date: 20130426
  Receipt Date: 20130426
  Transmission Date: 20140414
  Serious: Yes (Other)
  Sender: FDA-Public Use
  Company Number: SYM-2013-03054

PATIENT
  Age: 54 Year
  Sex: Female

DRUGS (1)
  1. ZYBAN [Suspect]
     Indication: SMOKING CESSATION THERAPY
     Route: 048
     Dates: start: 201302, end: 20130407

REACTIONS (10)
  - Anxiety [None]
  - Depressed mood [None]
  - Suicidal ideation [None]
  - Hyperhidrosis [None]
  - Decreased appetite [None]
  - Tremor [None]
  - Restlessness [None]
  - Temperature intolerance [None]
  - Negative thoughts [None]
  - Palpitations [None]
